FAERS Safety Report 16261751 (Version 9)
Quarter: 2019Q3

REPORT INFORMATION
  Report Type: Spontaneous
  Country: US (occurrence: US)
  Receive Date: 20190501
  Receipt Date: 20190820
  Transmission Date: 20191004
  Serious: Yes (Other)
  Sender: FDA-Public Use
  Company Number: US-PFIZER INC-2019182304

PATIENT
  Age: 59 Year
  Sex: Female

DRUGS (1)
  1. XELJANZ [Suspect]
     Active Substance: TOFACITINIB CITRATE
     Dosage: 5 MG, UNK

REACTIONS (10)
  - Pain in extremity [Not Recovered/Not Resolved]
  - Pain [Unknown]
  - Nervousness [Unknown]
  - Discomfort [Unknown]
  - Rheumatoid arthritis [Unknown]
  - Anxiety [Unknown]
  - Polymyositis [Unknown]
  - Arthralgia [Recovering/Resolving]
  - Feeling abnormal [Unknown]
  - Stress [Recovering/Resolving]
